FAERS Safety Report 25162189 (Version 4)
Quarter: 2025Q4

REPORT INFORMATION
  Report Type: Spontaneous
  Country: US (occurrence: US)
  Receive Date: 20250404
  Receipt Date: 20251104
  Transmission Date: 20260117
  Serious: Yes (Other)
  Sender: SANOFI AVENTIS
  Company Number: US-SA-2025SA095369

PATIENT
  Age: 37 Year
  Sex: Female

DRUGS (3)
  1. DUPIXENT [Suspect]
     Active Substance: DUPILUMAB
     Indication: Eosinophilic oesophagitis
     Dosage: 300 MG, QW
     Route: 058
     Dates: start: 20230613, end: 202504
  2. DUPIXENT [Suspect]
     Active Substance: DUPILUMAB
     Dosage: 300 MG, QW
     Route: 058
     Dates: start: 202505
  3. MEDROL [Concomitant]
     Active Substance: METHYLPREDNISOLONE
     Dosage: UNK

REACTIONS (10)
  - Choking [Not Recovered/Not Resolved]
  - Candida infection [Recovered/Resolved]
  - Dysphagia [Recovered/Resolved]
  - Odynophagia [Unknown]
  - Cough [Not Recovered/Not Resolved]
  - Retching [Unknown]
  - Weight decreased [Unknown]
  - Vomiting [Recovering/Resolving]
  - Injection site pain [Unknown]
  - Dental care [Unknown]

NARRATIVE: CASE EVENT DATE: 20230601
